FAERS Safety Report 6249808-0 (Version None)
Quarter: 2009Q2

REPORT INFORMATION
  Report Type: 
  Country: None (occurrence: None)
  Receive Date: 20090629
  Receipt Date: 20090617
  Transmission Date: 20091009
  Serious: Yes (Other)
  Sender: FDA-Public Use
  Company Number: PHHY2009ZA24362

PATIENT
  Sex: Female

DRUGS (2)
  1. ACLASTA [Suspect]
     Dosage: 5 MG/100 ML
     Dates: start: 20090609
  2. CORTISONE [Concomitant]

REACTIONS (2)
  - BLOOD PRESSURE INCREASED [None]
  - FIBROMYALGIA [None]
